FAERS Safety Report 5309786-5 (Version None)
Quarter: 2007Q2

REPORT INFORMATION
  Report Type: 
  Country: None (occurrence: None)
  Receive Date: 20070427
  Receipt Date: 20060814
  Transmission Date: 20071010
  Serious: No
  Sender: FDA-Public Use
  Company Number: US-GLAXOSMITHKLINE-A0616548A

PATIENT
  Age: 41 Year
  Sex: Female

DRUGS (20)
  1. ZOFRAN [Suspect]
     Dosage: 2MGML TWICE PER DAY
     Route: 030
     Dates: start: 20060401
  2. TEBAMIDE [Concomitant]
  3. PROMETHAZINE [Concomitant]
  4. UNKNOWN MEDICATION [Concomitant]
  5. NEXIUM [Concomitant]
  6. PROTONIX [Concomitant]
  7. VALIUM [Concomitant]
  8. OXYCONTIN [Concomitant]
  9. OXYCODONE HCL [Concomitant]
  10. ELMIRON [Concomitant]
  11. FORADIL [Concomitant]
  12. AMITRIPTYLINE HCL [Concomitant]
  13. SINGULAIR [Concomitant]
  14. B12 [Concomitant]
  15. VITAMIN CAP [Concomitant]
  16. IRON [Concomitant]
  17. LOMOTIL [Concomitant]
  18. IMODIUM [Concomitant]
  19. ANTISPASMODIC [Concomitant]
  20. ZOLOFT [Concomitant]

REACTIONS (4)
  - ALOPECIA [None]
  - DEHYDRATION [None]
  - DRUG INEFFECTIVE [None]
  - THERAPEUTIC RESPONSE UNEXPECTED [None]
